FAERS Safety Report 6392237-X (Version None)
Quarter: 2009Q4

REPORT INFORMATION
  Report Type: 
  Country: None (occurrence: None)
  Receive Date: 20091005
  Receipt Date: 20090916
  Transmission Date: 20100525
  Serious: Yes (Hospitalization)
  Sender: FDA-Public Use
  Company Number: BVT-000328

PATIENT
  Age: 32 Year
  Sex: Female

DRUGS (5)
  1. KINERET [Suspect]
     Indication: STILL'S DISEASE ADULT ONSET
     Dates: start: 20090401
  2. KINERET [Suspect]
     Indication: STILL'S DISEASE ADULT ONSET
     Dates: start: 20090101
  3. ANTIBIOTICS [Concomitant]
  4. GLUCOCORTICOIDS [Concomitant]
  5. , [Concomitant]

REACTIONS (1)
  - UPPER RESPIRATORY TRACT INFECTION [None]
